FAERS Safety Report 23224519 (Version 3)
Quarter: 2024Q4

REPORT INFORMATION
  Report Type: Report from Study
  Country: CZ (occurrence: CZ)
  Receive Date: 20231124
  Receipt Date: 20241023
  Transmission Date: 20250115
  Serious: Yes (Other)
  Sender: CHEPLAPHARM
  Company Number: CZ-ELI_LILLY_AND_COMPANY-CZ202311000742

PATIENT
  Age: 27 Year
  Sex: Male

DRUGS (16)
  1. OLANZAPINE [Suspect]
     Active Substance: OLANZAPINE
     Indication: Psychotic disorder
     Dosage: 25 MG, DAILY?DAILY DOSE: 25 MILLIGRAM
  2. OLANZAPINE [Suspect]
     Active Substance: OLANZAPINE
     Indication: Schizophrenia
     Dosage: 25 MG, DAILY?DAILY DOSE: 25 MILLIGRAM
  3. OLANZAPINE [Suspect]
     Active Substance: OLANZAPINE
     Indication: Psychotic disorder
     Dosage: 30 MG, DAILY?DAILY DOSE: 30 MILLIGRAM
  4. OLANZAPINE [Suspect]
     Active Substance: OLANZAPINE
     Indication: Schizophrenia
     Dosage: 30 MG, DAILY?DAILY DOSE: 30 MILLIGRAM
  5. OLANZAPINE [Suspect]
     Active Substance: OLANZAPINE
     Indication: Psychotic disorder
     Dosage: MONOTHERAPY  FOR  SEVERAL? MONTHS
  6. OLANZAPINE [Suspect]
     Active Substance: OLANZAPINE
     Indication: Schizophrenia
     Dosage: MONOTHERAPY  FOR  SEVERAL? MONTHS
  7. CLONAZEPAM [Suspect]
     Active Substance: CLONAZEPAM
     Indication: Schizophrenia
     Dosage: 4 MG, DAILY?DAILY DOSE: 4 MILLIGRAM
  8. CHLORPROTHIXENE [Suspect]
     Active Substance: CHLORPROTHIXENE
     Indication: Schizophrenia
     Dosage: 100 MG, DAILY?DAILY DOSE: 100 MILLIGRAM
  9. HALOPERIDOL [Suspect]
     Active Substance: HALOPERIDOL
     Indication: Schizophrenia
     Dosage: 3 MG, DAILY?DAILY DOSE: 3 MILLIGRAM
     Route: 048
  10. HALOPERIDOL [Suspect]
     Active Substance: HALOPERIDOL
     Indication: Drug intolerance
     Dosage: 3 MG, DAILY?DAILY DOSE: 3 MILLIGRAM
     Route: 048
  11. HALOPERIDOL [Suspect]
     Active Substance: HALOPERIDOL
     Indication: Akathisia
     Dosage: 3 MG, DAILY?DAILY DOSE: 3 MILLIGRAM
     Route: 048
  12. HALOPERIDOL [Suspect]
     Active Substance: HALOPERIDOL
     Indication: Schizophrenia
     Dosage: PAST HISTORY
  13. HALOPERIDOL [Suspect]
     Active Substance: HALOPERIDOL
     Indication: Drug intolerance
     Dosage: PAST HISTORY
  14. HALOPERIDOL [Suspect]
     Active Substance: HALOPERIDOL
     Indication: Akathisia
     Dosage: PAST HISTORY
  15. HALOPERIDOL DECANOATE [Suspect]
     Active Substance: HALOPERIDOL DECANOATE
     Indication: Product used for unknown indication
     Dosage: 50 MG, UNKNOWN
     Route: 030
  16. ARIPIPRAZOLE [Suspect]
     Active Substance: ARIPIPRAZOLE
     Indication: Schizophrenia
     Dosage: 10 MILLIGRAM DAILY; 10 MG P.D?DAILY DOSE: 10 MILLIGRAM
     Route: 048

REACTIONS (8)
  - Anxiety [Recovered/Resolved]
  - Hallucination, auditory [Not Recovered/Not Resolved]
  - Irritability [Recovered/Resolved]
  - Insomnia [Recovered/Resolved]
  - Restlessness [Recovered/Resolved]
  - Akathisia [Recovered/Resolved]
  - Discomfort [Recovered/Resolved]
  - Off label use [Unknown]
